FAERS Safety Report 12865874 (Version 3)
Quarter: 2017Q1

REPORT INFORMATION
  Report Type: Spontaneous
  Country: US (occurrence: US)
  Receive Date: 20161020
  Receipt Date: 20170315
  Transmission Date: 20170428
  Serious: Yes (Hospitalization, Other)
  Sender: FDA-Public Use
  Company Number: US-JNJFOC-20161016970

PATIENT
  Age: 90 Year
  Sex: Female

DRUGS (2)
  1. XARELTO [Suspect]
     Active Substance: RIVAROXABAN
     Indication: ATRIAL FIBRILLATION
     Route: 048
     Dates: end: 20161005
  2. EYLEA [Suspect]
     Active Substance: AFLIBERCEPT
     Indication: NEOVASCULAR AGE-RELATED MACULAR DEGENERATION
     Dosage: 0.05 ML (2 MG), IN THE RIGHT EYE, MONTHLY
     Route: 031
     Dates: start: 20161004, end: 20161004

REACTIONS (6)
  - Diverticulum [Unknown]
  - Visual acuity reduced transiently [Unknown]
  - Ocular hyperaemia [Recovered/Resolved]
  - Rectal haemorrhage [Unknown]
  - Thrombosis [Unknown]
  - Injection site haemorrhage [Unknown]

NARRATIVE: CASE EVENT DATE: 201610
